FAERS Safety Report 16100057 (Version 1)
Quarter: 2019Q1

REPORT INFORMATION
  Report Type: Spontaneous
  Country: CA (occurrence: CA)
  Receive Date: 20190321
  Receipt Date: 20190321
  Transmission Date: 20190418
  Serious: Yes (Hospitalization)
  Sender: FDA-Public Use
  Company Number: CA-JNJFOC-20190319723

PATIENT
  Age: 12 Year
  Sex: Female
  Weight: 57 kg

DRUGS (8)
  1. CEFPROZIL. [Concomitant]
     Active Substance: CEFPROZIL
     Route: 048
  2. IRON [Concomitant]
     Active Substance: IRON
     Route: 065
  3. PREVACID [Concomitant]
     Active Substance: LANSOPRAZOLE
     Route: 065
  4. LANSOPRAZOLE. [Concomitant]
     Active Substance: LANSOPRAZOLE
     Route: 048
  5. VITAMIN D [Concomitant]
     Active Substance: CHOLECALCIFEROL
     Route: 065
  6. PREDNISONE. [Concomitant]
     Active Substance: PREDNISONE
     Route: 065
  7. REMICADE [Suspect]
     Active Substance: INFLIXIMAB
     Indication: CROHN^S DISEASE
     Route: 042
  8. CEFALEXIN [Concomitant]
     Active Substance: CEPHALEXIN
     Route: 065

REACTIONS (11)
  - Bacterial test negative [Unknown]
  - Rash [Unknown]
  - Off label use [Unknown]
  - Arthralgia [Unknown]
  - Neutrophilic dermatosis [Unknown]
  - Product use issue [Unknown]
  - Folliculitis [Unknown]
  - Back pain [Unknown]
  - Myalgia [Unknown]
  - Rash pustular [Unknown]
  - Mobility decreased [Unknown]
